FAERS Safety Report 4489171-9 (Version None)
Quarter: 2004Q4

REPORT INFORMATION
  Report Type: 
  Country: None (occurrence: None)
  Receive Date: 20041029
  Receipt Date: 20041025
  Transmission Date: 20050328
  Serious: Yes (Hospitalization)
  Sender: FDA-Public Use
  Company Number: CA-BRISTOL-MYERS SQUIBB COMPANY-12748281

PATIENT
  Age: 56 Year
  Sex: Male

DRUGS (4)
  1. GLUCOPHAGE [Suspect]
     Indication: DIABETES MELLITUS
     Route: 048
     Dates: start: 20010101
  2. ASAPHEN [Suspect]
     Indication: PROPHYLAXIS
     Route: 048
     Dates: end: 20041014
  3. DIABETA [Concomitant]
     Indication: DIABETES MELLITUS
     Route: 048
     Dates: start: 19940101
  4. ZOCOR [Concomitant]
     Indication: BLOOD CHOLESTEROL INCREASED
     Route: 048

REACTIONS (1)
  - NEPHROLITHIASIS [None]
